FAERS Safety Report 22531609 (Version 3)
Quarter: 2024Q3

REPORT INFORMATION
  Report Type: Report from Study
  Country: US (occurrence: US)
  Receive Date: 20230607
  Receipt Date: 20240925
  Transmission Date: 20241016
  Serious: No
  Sender: NOVARTIS
  Company Number: US-002147023-NVSC2023US130194

PATIENT
  Sex: Female

DRUGS (17)
  1. COSENTYX [Suspect]
     Active Substance: SECUKINUMAB
     Indication: Psoriasis
     Dosage: 300 MG, QMO
     Route: 058
     Dates: start: 20230513
  2. BUMEX [Concomitant]
     Active Substance: BUMETANIDE
     Indication: Product used for unknown indication
     Dosage: 1 DOSAGE FORM, BID (60 TABLETS)
     Route: 048
  3. OYSTER SHELL CALCIUM WITH VITAMIN D [Concomitant]
     Active Substance: CALCIUM\CHOLECALCIFEROL
     Indication: Product used for unknown indication
     Dosage: 1 DOSAGE FORM, QD (1,250 MG) (400 UNIT) (90 TABLET)
     Route: 048
  4. ZYRTEC [Concomitant]
     Active Substance: CETIRIZINE HYDROCHLORIDE
     Indication: Product used for unknown indication
     Dosage: 2 DOSAGE FORM, QD
     Route: 048
  5. ALLEGRA ALLERGY [Concomitant]
     Active Substance: FEXOFENADINE HYDROCHLORIDE
     Indication: Product used for unknown indication
     Dosage: 1 DOSAGE FORM, QD (180 TABLET)
     Route: 048
  6. FLUOCINOLONE [Concomitant]
     Active Substance: FLUOCINOLONE
     Indication: Product used for unknown indication
     Dosage: UNK, PRN (OIL)
     Route: 065
  7. CORTEF [Concomitant]
     Active Substance: HYDROCORTISONE
     Indication: Illness
     Dosage: 1 DOSAGE FORM (1 TABLET IN AM) (90 TABLET)
     Route: 065
  8. HYDROCORTISONE SODIUM SUCCINATE [Concomitant]
     Active Substance: HYDROCORTISONE SODIUM SUCCINATE
     Indication: Product used for unknown indication
     Dosage: 50 MG (RECON SOLN) (IV PRIOR TO PROCEDURE) (1 EACH)
     Route: 042
  9. ATARAX [Concomitant]
     Active Substance: HYDROXYZINE HYDROCHLORIDE
     Indication: Anxiety
     Dosage: 0.5 DOSAGE FORM, BID (12.5 MG TOTAL 2 TIMES A DAY AS NEEDED FOR ANXIETY) (90 TABLET)
     Route: 048
  10. COMBIVENT RESPIMAT [Concomitant]
     Active Substance: ALBUTEROL SULFATE\IPRATROPIUM BROMIDE
     Indication: Product used for unknown indication
     Dosage: 2 DOSAGE FORM, PRN (2 PUFFS) (20-100 MCG/ACTUATION)
     Route: 065
  11. ELOCON [Concomitant]
     Active Substance: MOMETASONE FUROATE
     Indication: Product used for unknown indication
     Dosage: UNK, (LOTION)
     Route: 065
  12. ZOFRAN [Concomitant]
     Active Substance: ONDANSETRON HYDROCHLORIDE
     Indication: Nausea
     Dosage: 1 DOSAGE FORM, QD (90 TABLETS)
     Route: 048
  13. PROTONIX [Concomitant]
     Active Substance: PANTOPRAZOLE SODIUM
     Indication: Product used for unknown indication
     Dosage: 1 DOSAGE FORM, QD
     Route: 048
  14. POLYETHYLENE GLYCOL [Concomitant]
     Active Substance: POLYETHYLENE GLYCOL
     Indication: Product used for unknown indication
     Dosage: UNK, QD (MIX 1 PACKET IN 8 OZ OF LIQUID AND DRINK ONCE DAILY
     Route: 048
  15. KLOR-CON M20 [Concomitant]
     Active Substance: POTASSIUM CHLORIDE
     Indication: Product used for unknown indication
     Dosage: 1 DOSAGE FORM, QD (CR TABLET, 30 TABLET)
     Route: 048
  16. INDERAL [Concomitant]
     Active Substance: PROPRANOLOL HYDROCHLORIDE
     Indication: Product used for unknown indication
     Dosage: 1 DOSAGE FORM, BID (180 TABLET)
     Route: 048
  17. NURTEC ODT [Concomitant]
     Active Substance: RIMEGEPANT SULFATE
     Indication: Product used for unknown indication
     Dosage: UNK, PRN, PLACE UNDER THE TONGUE DAILY AS NEEDED
     Route: 065

REACTIONS (9)
  - Tonsillitis [Unknown]
  - Pharyngitis [Recovered/Resolved]
  - Urinary tract infection [Unknown]
  - Oropharyngeal pain [Unknown]
  - Odynophagia [Unknown]
  - Chills [Unknown]
  - Diarrhoea [Unknown]
  - Tonsillar exudate [Unknown]
  - Pharyngitis bacterial [Unknown]
